FAERS Safety Report 5412225-7 (Version None)
Quarter: 2007Q3

REPORT INFORMATION
  Report Type: 
  Country: None (occurrence: None)
  Receive Date: 20070809
  Receipt Date: 20070803
  Transmission Date: 20080115
  Serious: Yes (Other)
  Sender: FDA-Public Use
  Company Number: 2007-03660

PATIENT
  Age: 36 Year
  Sex: Female

DRUGS (2)
  1. FERRLECIT [Suspect]
     Indication: GASTRIC BYPASS
     Dosage: 125 MG, 1/WEEK OVER 20 MIN. X2, INTRAVENOUS
     Route: 042
     Dates: start: 20070712, end: 20070719
  2. FERRLECIT [Suspect]
     Indication: IRON DEFICIENCY ANAEMIA
     Dosage: 125 MG, 1/WEEK OVER 20 MIN. X2, INTRAVENOUS
     Route: 042
     Dates: start: 20070712, end: 20070719

REACTIONS (7)
  - ANAPHYLACTIC REACTION [None]
  - ANXIETY [None]
  - ARTHRALGIA [None]
  - ASTHENIA [None]
  - DYSPHONIA [None]
  - FATIGUE [None]
  - MYALGIA [None]
